FAERS Safety Report 25022488 (Version 2)
Quarter: 2025Q1

REPORT INFORMATION
  Report Type: Spontaneous
  Country: US (occurrence: US)
  Receive Date: 20250228
  Receipt Date: 20250318
  Transmission Date: 20250409
  Serious: No
  Sender: ROCHE
  Company Number: US-ROCHE-10000212773

PATIENT

DRUGS (1)
  1. CATHFLO ACTIVASE [Suspect]
     Active Substance: ALTEPLASE
     Indication: Vascular device occlusion
     Route: 050
     Dates: start: 20250217, end: 20250217

REACTIONS (4)
  - Product storage error [Unknown]
  - Off label use [Unknown]
  - Off label use [Unknown]
  - No adverse event [Unknown]

NARRATIVE: CASE EVENT DATE: 20250217
